FAERS Safety Report 6944858-0 (Version None)
Quarter: 2010Q3

REPORT INFORMATION
  Report Type: 
  Country: None (occurrence: None)
  Receive Date: 20100827
  Receipt Date: 20100810
  Transmission Date: 20110219
  Serious: No
  Sender: FDA-Public Use
  Company Number: US-BAYER-201030623NA

PATIENT
  Sex: Female

DRUGS (1)
  1. MIRENA [Suspect]
     Indication: PRODUCT USED FOR UNKNOWN INDICATION
     Dosage: FREQUENCY CONTINUOUS
     Route: 015
     Dates: start: 20091101

REACTIONS (1)
  - FEELING ABNORMAL [None]
